FAERS Safety Report 6657557-X (Version None)
Quarter: 2010Q1

REPORT INFORMATION
  Report Type: 
  Country: None (occurrence: None)
  Receive Date: 20100330
  Receipt Date: 20100119
  Transmission Date: 20100710
  Serious: Yes (Hospitalization)
  Sender: FDA-Public Use
  Company Number: FR-ELI_LILLY_AND_COMPANY-FR201003003296

PATIENT
  Sex: Male
  Weight: 121 kg

DRUGS (5)
  1. ZYPREXA [Suspect]
     Indication: SCHIZOPHRENIA
     Dosage: UNK, UNKNOWN
     Dates: start: 20090310
  2. HALDOL DECANOAS [Concomitant]
     Indication: SCHIZOPHRENIA
     Dosage: UNK, UNKNOWN
     Dates: start: 20060901
  3. DEPAKOTE [Concomitant]
     Indication: SCHIZOPHRENIA
     Dosage: UNK, UNKNOWN
     Dates: start: 20061205
  4. KARDEGIC [Concomitant]
     Dosage: UNK, UNKNOWN
  5. AMLOR [Concomitant]
     Dosage: UNK, UNKNOWN

REACTIONS (2)
  - DIABETES MELLITUS INADEQUATE CONTROL [None]
  - GASTRITIS [None]
